FAERS Safety Report 16767267 (Version 1)
Quarter: 2019Q3

REPORT INFORMATION
  Report Type: Spontaneous
  Country: US (occurrence: US)
  Receive Date: 20190715
  Receipt Date: 20190715
  Transmission Date: 20191005
  Serious: No
  Sender: FDA-Public Use
  Company Number: None

PATIENT
  Age: 67 Year
  Sex: Female
  Weight: 68.95 kg

DRUGS (8)
  1. ORENCIA [Suspect]
     Active Substance: ABATACEPT
     Indication: RHEUMATOID ARTHRITIS
     Route: 058
     Dates: start: 201903
  2. ORENCIA [Suspect]
     Active Substance: ABATACEPT
     Indication: THORACIC VERTEBRAL FRACTURE
     Route: 058
     Dates: start: 201903
  3. ORENCIA [Suspect]
     Active Substance: ABATACEPT
     Indication: OSTEOPOROSIS
     Route: 058
     Dates: start: 201903
  4. METHOTREXATE. [Suspect]
     Active Substance: METHOTREXATE
     Indication: OSTEOPOROSIS
  5. METHOTREXATE. [Suspect]
     Active Substance: METHOTREXATE
     Indication: POST LAMINECTOMY SYNDROME
  6. METHOTREXATE. [Suspect]
     Active Substance: METHOTREXATE
     Indication: RHEUMATOID ARTHRITIS
  7. ORENCIA [Suspect]
     Active Substance: ABATACEPT
     Indication: POST LAMINECTOMY SYNDROME
     Route: 058
     Dates: start: 201903
  8. METHOTREXATE. [Suspect]
     Active Substance: METHOTREXATE
     Indication: THORACIC VERTEBRAL FRACTURE

REACTIONS (1)
  - Herpes zoster [None]
